FAERS Safety Report 16107340 (Version 1)
Quarter: 2019Q1

REPORT INFORMATION
  Report Type: Spontaneous
  Country: DE (occurrence: DE)
  Receive Date: 20190322
  Receipt Date: 20190322
  Transmission Date: 20190418
  Serious: Yes (Other)
  Sender: FDA-Public Use
  Company Number: DE-TEVA-2019-DE-1027453

PATIENT
  Sex: Male

DRUGS (1)
  1. PANTOPRAZOL-RATIOPHARM 40 MG MAGENSAFTRESISTENTE [Suspect]
     Active Substance: PANTOPRAZOLE SODIUM
     Indication: DYSPEPSIA
     Dosage: USE FOR AN EXTENDED PERIOD OF TIME, TAKING IT EVERY NOW AND THEN

REACTIONS (3)
  - Femoral neck fracture [Unknown]
  - Back pain [Unknown]
  - Arthralgia [Unknown]

NARRATIVE: CASE EVENT DATE: 201810
